FAERS Safety Report 4980525-0 (Version None)
Quarter: 2006Q2

REPORT INFORMATION
  Report Type: 
  Country: None (occurrence: None)
  Receive Date: 20060424
  Receipt Date: 20060412
  Transmission Date: 20061013
  Serious: Yes (Other)
  Sender: FDA-Public Use
  Company Number: JP-ROCHE-444597

PATIENT

DRUGS (1)
  1. TAMIFLU [Suspect]
     Indication: INFLUENZA

REACTIONS (3)
  - DRUG EXPOSURE DURING PREGNANCY [None]
  - PREGNANCY [None]
  - STILLBIRTH [None]
